FAERS Safety Report 8611623-8 (Version None)
Quarter: 2012Q3

REPORT INFORMATION
  Report Type: 
  Country: None (occurrence: None)
  Receive Date: 20120822
  Receipt Date: 20120814
  Transmission Date: 20120928
  Serious: Yes (Hospitalization)
  Sender: FDA-Public Use
  Company Number: US-ABBOTT-12P-163-0949861-00

PATIENT
  Sex: Male

DRUGS (33)
  1. ASPIRIN [Concomitant]
     Indication: CARDIAC DISORDER
  2. FIORICET [Concomitant]
     Indication: HEADACHE
  3. NORCO [Concomitant]
     Indication: ABDOMINAL PAIN
  4. SYNTHROID [Concomitant]
     Indication: HYPOTHYROIDISM
  5. FIORICET [Concomitant]
     Indication: PRODUCT USED FOR UNKNOWN INDICATION
  6. ZETIA [Concomitant]
     Indication: BLOOD CHOLESTEROL INCREASED
  7. IMURAN [Concomitant]
  8. VICODIN ES [Concomitant]
     Indication: PRODUCT USED FOR UNKNOWN INDICATION
  9. MIRALAX [Concomitant]
     Indication: PRODUCT USED FOR UNKNOWN INDICATION
     Dosage: 1 SCOOP MOST DAYS
  10. CPAP [Concomitant]
     Indication: PRODUCT USED FOR UNKNOWN INDICATION
  11. NORCO [Concomitant]
     Indication: PANCREATITIS
     Dosage: 10/325MG 2 TABLETS Q4H PRN
  12. NITROSTAT [Concomitant]
     Indication: PRODUCT USED FOR UNKNOWN INDICATION
  13. LANSOPRAZOLE [Concomitant]
     Indication: PRODUCT USED FOR UNKNOWN INDICATION
  14. TRILIPIX [Concomitant]
     Indication: PRODUCT USED FOR UNKNOWN INDICATION
  15. LIPITOR [Concomitant]
     Indication: BLOOD CHOLESTEROL INCREASED
  16. IMURAN [Concomitant]
  17. TRILIPIX [Concomitant]
     Indication: BLOOD CHOLESTEROL INCREASED
  18. BYSTOLIC [Concomitant]
     Indication: BLOOD CHOLESTEROL INCREASED
  19. AZULFIDINE [Concomitant]
     Indication: PRODUCT USED FOR UNKNOWN INDICATION
     Dosage: ONLY TAKING 2 G DAILY AT MOST
  20. CARVEDILOL [Concomitant]
     Indication: PRODUCT USED FOR UNKNOWN INDICATION
  21. XANAX [Concomitant]
     Indication: PRODUCT USED FOR UNKNOWN INDICATION
  22. HUMIRA [Suspect]
     Indication: CROHN'S DISEASE
     Dosage: 160MG LOADING DOSE
  23. HUMIRA [Suspect]
  24. CLONIDINE [Concomitant]
     Indication: BLOOD CHOLESTEROL INCREASED
  25. NORCO [Concomitant]
     Indication: PAIN
  26. ZOFRAN [Concomitant]
     Indication: PRODUCT USED FOR UNKNOWN INDICATION
  27. PLAVIX [Concomitant]
     Indication: PRODUCT USED FOR UNKNOWN INDICATION
  28. IMURAN [Concomitant]
     Indication: CROHN'S DISEASE
     Dosage: DAILY
  29. BYSTOLIC [Concomitant]
     Indication: PRODUCT USED FOR UNKNOWN INDICATION
  30. ZETIA [Concomitant]
     Indication: PRODUCT USED FOR UNKNOWN INDICATION
  31. LIPITOR [Concomitant]
     Indication: PRODUCT USED FOR UNKNOWN INDICATION
  32. XANAX [Concomitant]
     Indication: INSOMNIA
  33. PROVIGIL [Concomitant]
     Indication: PRODUCT USED FOR UNKNOWN INDICATION

REACTIONS (14)
  - NUCLEAR MAGNETIC RESONANCE IMAGING ABNORMAL [None]
  - HYPOPHAGIA [None]
  - LIPASE INCREASED [None]
  - ABDOMINAL PAIN [None]
  - AMYLASE INCREASED [None]
  - ABDOMINAL DISCOMFORT [None]
  - PANCREATIC DUCT OBSTRUCTION [None]
  - ABDOMINAL PAIN UPPER [None]
  - INSOMNIA [None]
  - FOOD INTOLERANCE [None]
  - FATIGUE [None]
  - DECREASED APPETITE [None]
  - WEIGHT DECREASED [None]
  - ASTHENIA [None]
